FAERS Safety Report 7724418-4 (Version None)
Quarter: 2011Q3

REPORT INFORMATION
  Report Type: 
  Country: None (occurrence: None)
  Receive Date: 20110829
  Receipt Date: 20110815
  Transmission Date: 20111222
  Serious: Yes (Life-Threatening, Hospitalization)
  Sender: FDA-Public Use
  Company Number: 1005663

PATIENT
  Age: 63 Year
  Sex: Male
  Weight: 84.09 kg

DRUGS (1)
  1. FENTANYL CITRATE [Suspect]
     Indication: PROCEDURAL PAIN
     Dosage: 150 MCG, ONCE, INTRAVENOUS
     Route: 042
     Dates: start: 20110802

REACTIONS (6)
  - DEPRESSED LEVEL OF CONSCIOUSNESS [None]
  - SEPTIC SHOCK [None]
  - APPENDICITIS PERFORATED [None]
  - HYPOTENSION [None]
  - APNOEA [None]
  - MIOSIS [None]
